FAERS Safety Report 23578928 (Version 1)
Quarter: 2024Q1

REPORT INFORMATION
  Report Type: Other
  Country: CN (occurrence: None)
  Receive Date: 20240229
  Receipt Date: 20240229
  Transmission Date: 20240409
  Serious: Yes (Other)
  Sender: FDA-Public Use
  Company Number: CN-ROCHE-3515266

PATIENT
  Age: 63 Year
  Sex: Male

DRUGS (5)
  1. BEVACIZUMAB [Suspect]
     Active Substance: BEVACIZUMAB
     Indication: Lung adenocarcinoma
     Dosage: ON DAY 1
     Route: 065
     Dates: start: 202107
  2. PEMETREXED [Suspect]
     Active Substance: PEMETREXED
     Indication: Lung adenocarcinoma
     Dosage: ON DAY 1
     Route: 065
     Dates: start: 202107
  3. CISPLATIN [Suspect]
     Active Substance: CISPLATIN
     Indication: Lung adenocarcinoma
     Dosage: ON DAY 1-5
     Route: 065
     Dates: start: 202107
  4. AUMOLERTINIB [Concomitant]
     Active Substance: AUMOLERTINIB
     Indication: Lung adenocarcinoma
     Dates: start: 202101
  5. AUMOLERTINIB [Concomitant]
     Active Substance: AUMOLERTINIB
     Dates: start: 202103

REACTIONS (1)
  - Disease progression [Unknown]

NARRATIVE: CASE EVENT DATE: 20220501
